FAERS Safety Report 9384048 (Version 1)
Quarter: 2013Q3

REPORT INFORMATION
  Report Type: Spontaneous
  Country: IT (occurrence: IT)
  Receive Date: 20130705
  Receipt Date: 20130705
  Transmission Date: 20140515
  Serious: Yes (Hospitalization)
  Sender: FDA-Public Use
  Company Number: IT-ASTRAZENECA-2013SE49196

PATIENT
  Age: 79 Year
  Sex: Female
  Weight: 90 kg

DRUGS (5)
  1. CRESTOR [Suspect]
     Indication: PROPHYLAXIS
     Route: 048
  2. GLIBOMET [Concomitant]
     Dosage: FREQUENCY: EVERY EIGHT HOURS
  3. KARVEAZIDE [Concomitant]
     Dosage: 300+25 MG
  4. CARDURA [Concomitant]
  5. NORVASC [Concomitant]

REACTIONS (1)
  - Ischaemia [Recovered/Resolved with Sequelae]
